FAERS Safety Report 24149732 (Version 1)
Quarter: 2024Q3

REPORT INFORMATION
  Report Type: Spontaneous
  Country: BY (occurrence: BY)
  Receive Date: 20240730
  Receipt Date: 20240730
  Transmission Date: 20241016
  Serious: Yes (Death)
  Sender: NOVARTIS
  Company Number: BY-002147023-NVSC2024BY154682

PATIENT
  Sex: Female

DRUGS (1)
  1. LAPATINIB [Suspect]
     Active Substance: LAPATINIB
     Indication: Product used for unknown indication
     Dosage: 5 UNK, QD (5 PER DAY)
     Route: 065

REACTIONS (1)
  - Death [Fatal]
